FAERS Safety Report 8002973-7 (Version None)
Quarter: 2011Q4

REPORT INFORMATION
  Report Type: 
  Country: None (occurrence: None)
  Receive Date: 20111222
  Receipt Date: 20110621
  Transmission Date: 20120403
  Serious: No
  Sender: FDA-Public Use
  Company Number: US-GLAXOSMITHKLINE-A0932217A

PATIENT
  Age: 64 Year
  Sex: Male

DRUGS (4)
  1. VITAMIN D [Concomitant]
  2. FLOMAX [Concomitant]
  3. AVODART [Suspect]
     Indication: PROSTATOMEGALY
     Dosage: 1CAP PER DAY
     Route: 048
     Dates: start: 20100901, end: 20110611
  4. LIPITOR [Concomitant]

REACTIONS (3)
  - EJACULATION DISORDER [None]
  - SEMEN VOLUME DECREASED [None]
  - SPERM CONCENTRATION DECREASED [None]
